FAERS Safety Report 16992324 (Version 1)
Quarter: 2019Q4

REPORT INFORMATION
  Report Type: Spontaneous
  Country: US (occurrence: US)
  Receive Date: 20191104
  Receipt Date: 20191104
  Transmission Date: 20200122
  Serious: Yes (Death, Life-Threatening, Hospitalization, Disabling)
  Sender: FDA-Public Use
  Company Number: None

PATIENT
  Age: 68 Year
  Sex: Female
  Weight: 36.3 kg

DRUGS (3)
  1. TECENTRIQ [Suspect]
     Active Substance: ATEZOLIZUMAB
     Dosage: ?          OTHER FREQUENCY:EVERY 21 DAYS;?
     Route: 040
     Dates: start: 20191016, end: 20191023
  2. ETOPOSIDE. [Concomitant]
     Active Substance: ETOPOSIDE
     Dates: start: 20191016, end: 20191023
  3. CARBOPLATIN. [Concomitant]
     Active Substance: CARBOPLATIN
     Dates: start: 20191016, end: 20191023

REACTIONS (4)
  - Limbic encephalitis [None]
  - Status epilepticus [None]
  - Immune-mediated encephalitis [None]
  - Herpes simplex encephalitis [None]

NARRATIVE: CASE EVENT DATE: 20191023
